FAERS Safety Report 8910954 (Version 1)
Quarter: 2012Q4

REPORT INFORMATION
  Report Type: Spontaneous
  Country: ZA (occurrence: None)
  Receive Date: 20121113
  Receipt Date: 20121113
  Transmission Date: 20130627
  Serious: Yes (Death, Hospitalization)
  Sender: FDA-Public Use
  Company Number: B0842970A

PATIENT
  Age: 10 Year
  Sex: Female

DRUGS (10)
  1. LAMIVUDINE [Suspect]
     Indication: ANTIRETROVIRAL THERAPY
  2. STAVUDINE [Suspect]
     Indication: ANTIRETROVIRAL THERAPY
  3. EFAVIRENZ [Suspect]
     Indication: ANTIRETROVIRAL THERAPY
  4. RIFAMPICIN [Concomitant]
  5. ISONIAZID [Concomitant]
  6. PYRAZINAMIDE [Concomitant]
  7. ETHIONAMIDE [Concomitant]
  8. PREDNISONE [Suspect]
  9. ACETAZOLAMIDE [Concomitant]
  10. FRUSEMIDE [Concomitant]

REACTIONS (8)
  - Somnolence [None]
  - Body temperature increased [None]
  - Immune reconstitution inflammatory syndrome [None]
  - Musculoskeletal stiffness [None]
  - Ataxia [None]
  - Upper motor neurone lesion [None]
  - Encephalopathy [None]
  - General physical health deterioration [None]
